FAERS Safety Report 9548204 (Version 1)
Quarter: 2013Q2

REPORT INFORMATION
  Report Type: Spontaneous
  Country: US (occurrence: None)
  Receive Date: 20130627
  Receipt Date: 20130627
  Transmission Date: 20140414
  Serious: Yes (Other)
  Sender: FDA-Public Use
  Company Number: 1000045102

PATIENT
  Age: 74 Year
  Sex: Female

DRUGS (4)
  1. LINZESS [Suspect]
     Indication: CONSTIPATION
     Route: 048
     Dates: start: 20130411, end: 201304
  2. LINZESS [Suspect]
     Indication: CONSTIPATION
     Route: 048
     Dates: start: 201304
  3. TRANXELE (CLORAZEPATE DIPOTASSIUM) (CLORAZEPATE DIPOTASSIUM) [Concomitant]
  4. CRESTOR 9ROSUVASTAT [Concomitant]

REACTIONS (2)
  - Lip swelling [None]
  - Swollen tongue [None]
